FAERS Safety Report 8015923-4 (Version None)
Quarter: 2011Q4

REPORT INFORMATION
  Report Type: 
  Country: None (occurrence: None)
  Receive Date: 20111223
  Receipt Date: 20111215
  Transmission Date: 20120403
  Serious: Yes (Hospitalization, Other)
  Sender: FDA-Public Use
  Company Number: 1139944

PATIENT
  Age: 29 Year
  Sex: Female
  Weight: 31.6838 kg

DRUGS (5)
  1. VANCOMYCIN [Suspect]
     Indication: ANTIBIOTIC THERAPY
     Dosage: STAT. DOSE GIVEN OVER 60 MINUTES
     Dates: start: 20111201, end: 20111201
  2. ACYCLOVIR [Concomitant]
  3. CHLORAMPHENICOL [Concomitant]
  4. PREGABALIN [Concomitant]
  5. ORAMORPH SR [Concomitant]

REACTIONS (6)
  - RED MAN SYNDROME [None]
  - OROPHARYNGEAL PAIN [None]
  - HEADACHE [None]
  - PHARYNGEAL OEDEMA [None]
  - PHOTOPHOBIA [None]
  - VISUAL IMPAIRMENT [None]
